FAERS Safety Report 7924805-5 (Version None)
Quarter: 2011Q4

REPORT INFORMATION
  Report Type: 
  Country: None (occurrence: None)
  Receive Date: 20111118
  Receipt Date: 20110328
  Transmission Date: 20120403
  Serious: No
  Sender: FDA-Public Use
  Company Number: US-AMGEN-USASP2011016675

PATIENT
  Sex: Female
  Weight: 75.283 kg

DRUGS (2)
  1. ENBREL [Suspect]
     Indication: PSORIASIS
  2. HUMIRA [Concomitant]
     Dosage: 40 MG, Q2WK
     Dates: start: 20090101

REACTIONS (3)
  - DRUG DOSE OMISSION [None]
  - DRUG INEFFECTIVE [None]
  - PSORIASIS [None]
